FAERS Safety Report 13924203 (Version 1)
Quarter: 2017Q3

REPORT INFORMATION
  Report Type: Spontaneous
  Country: DZ (occurrence: DZ)
  Receive Date: 20170831
  Receipt Date: 20170831
  Transmission Date: 20171127
  Serious: Yes (Death, Other)
  Sender: FDA-Public Use
  Company Number: DZ-BIOVITRUM-2017DZ0796

PATIENT
  Sex: Male

DRUGS (1)
  1. KINERET [Suspect]
     Active Substance: ANAKINRA
     Indication: MEVALONATE KINASE DEFICIENCY
     Dosage: 2 MG/KG
     Dates: start: 2015, end: 2017

REACTIONS (3)
  - Sepsis [Fatal]
  - Hepatic failure [Not Recovered/Not Resolved]
  - Fungal infection [Fatal]

NARRATIVE: CASE EVENT DATE: 2017
